FAERS Safety Report 6588922-7 (Version None)
Quarter: 2010Q1

REPORT INFORMATION
  Report Type: 
  Country: None (occurrence: None)
  Receive Date: 20100202
  Receipt Date: 20090910
  Transmission Date: 20100710
  Serious: No
  Sender: FDA-Public Use
  Company Number: 2009-00592

PATIENT
  Age: 69 Year
  Sex: Male
  Weight: 74.8435 kg

DRUGS (2)
  1. ZICAM COLD REMEDY GEL SWABS [Suspect]
     Indication: NASOPHARYNGITIS
     Dosage: QID, OFF AN ON, YEARS AGO -^MAYBE IN JUN^
  2. ZICAM COLD REMEDY GEL SWABS [Suspect]
     Dosage: QID, OFF AND ON, YEARS AGO -^MAYBE IN JUN^

REACTIONS (1)
  - ANOSMIA [None]
